FAERS Safety Report 21214510 (Version 1)
Quarter: 2022Q3

REPORT INFORMATION
  Report Type: Other
  Country: IN (occurrence: None)
  Receive Date: 20220816
  Receipt Date: 20220816
  Transmission Date: 20221026
  Serious: Yes (Other)
  Sender: FDA-Public Use
  Company Number: IN-ROCHE-3159249

PATIENT
  Sex: Female

DRUGS (3)
  1. CAPECITABINE [Suspect]
     Active Substance: CAPECITABINE
     Indication: Metastases to lymph nodes
     Dosage: FOR 14 DAYS IN A 3 WEEKLY CYCLE
     Route: 048
  2. PACLITAXEL [Concomitant]
     Active Substance: PACLITAXEL
     Indication: Breast cancer
     Dosage: FOR 6 CYCLES
  3. CARBOPLATIN [Concomitant]
     Active Substance: CARBOPLATIN
     Indication: Breast cancer
     Dosage: AREA UNDER THE CURVE 6?FOR 6 CYCLES

REACTIONS (3)
  - Seizure [Unknown]
  - Vomiting [Unknown]
  - Headache [Unknown]
